FAERS Safety Report 7851435-6 (Version None)
Quarter: 2011Q4

REPORT INFORMATION
  Report Type: 
  Country: None (occurrence: None)
  Receive Date: 20111026
  Receipt Date: 20111019
  Transmission Date: 20120403
  Serious: Yes (Hospitalization)
  Sender: FDA-Public Use
  Company Number: US-AMGEN-USASP2011054085

PATIENT
  Age: 60 Year
  Sex: Female

DRUGS (1)
  1. ENBREL [Suspect]
     Indication: RHEUMATOID ARTHRITIS
     Dosage: 25 MG, 2 TIMES/WK
     Dates: start: 20040701, end: 20110714

REACTIONS (5)
  - HYPOAESTHESIA [None]
  - SPINAL COLUMN STENOSIS [None]
  - BONE PAIN [None]
  - INTERVERTEBRAL DISC DEGENERATION [None]
  - DYSSTASIA [None]
